FAERS Safety Report 5931891-0 (Version None)
Quarter: 2008Q4

REPORT INFORMATION
  Report Type: 
  Country: None (occurrence: None)
  Receive Date: 20081027
  Receipt Date: 20081015
  Transmission Date: 20090506
  Serious: Yes (Other)
  Sender: FDA-Public Use
  Company Number: PH-PFIZER INC-2008087662

PATIENT
  Sex: Male
  Weight: 58 kg

DRUGS (2)
  1. SULPERAZON [Suspect]
     Indication: MENINGITIS
     Dates: start: 20080808, end: 20080814
  2. AMOXICILLIN + CLAVULANATE POTASSIUM [Concomitant]
     Dates: start: 20080707, end: 20080717

REACTIONS (1)
  - URINE OUTPUT DECREASED [None]
